FAERS Safety Report 8390139-0 (Version None)
Quarter: 2012Q2

REPORT INFORMATION
  Report Type: 
  Country: None (occurrence: None)
  Receive Date: 20120522
  Receipt Date: 20120510
  Transmission Date: 20120825
  Serious: Yes (Other)
  Sender: FDA-Public Use
  Company Number: 2012SP025029

PATIENT
  Age: 62 Year
  Sex: Male
  Weight: 68 kg

DRUGS (11)
  1. REBETOL [Suspect]
     Indication: HEPATITIS C
     Dosage: 800 MG;QD;PO ; 400 MG;QD;PO ; 200 MG;QD;PO
     Route: 048
     Dates: start: 20120305, end: 20120325
  2. REBETOL [Suspect]
     Indication: HEPATITIS C
     Dosage: 800 MG;QD;PO ; 400 MG;QD;PO ; 200 MG;QD;PO
     Route: 048
     Dates: start: 20120409
  3. REBETOL [Suspect]
     Indication: HEPATITIS C
     Dosage: 800 MG;QD;PO ; 400 MG;QD;PO ; 200 MG;QD;PO
     Route: 048
     Dates: start: 20120326, end: 20120408
  4. TELAVIC (ANTIVIRALS NOS) [Suspect]
     Indication: HEPATITIS C
     Dosage: 2250 MG;QD;PO
     Route: 048
     Dates: start: 20120305
  5. LIVALO [Concomitant]
  6. OLOPATADINE HCL [Concomitant]
  7. PREDNISOLONE [Concomitant]
  8. ADALAT CC [Concomitant]
  9. CANDESARTAN CILEXETIL [Suspect]
     Indication: HYPERTENSION
     Dosage: 8 MG;QD;PO
     Route: 048
  10. ZOLPIDEM [Concomitant]
  11. PEGINTERFERON ALFA-2B [Suspect]
     Indication: HEPATITIS C
     Dosage: 1.5 MCG/KG;QW;SC
     Route: 058
     Dates: start: 20120305

REACTIONS (4)
  - PRURITUS [None]
  - HYPERURICAEMIA [None]
  - RASH [None]
  - ORAL DISCOMFORT [None]
